FAERS Safety Report 24136926 (Version 1)
Quarter: 2024Q3

REPORT INFORMATION
  Report Type: Spontaneous
  Country: US (occurrence: None)
  Receive Date: 20240724
  Receipt Date: 20240724
  Transmission Date: 20241016
  Serious: Yes (unspecified)
  Sender: Public
  Company Number: None

PATIENT
  Age: 73 Year
  Sex: Female
  Weight: 68.03 kg

DRUGS (2)
  1. DUPIXENT [Suspect]
     Active Substance: DUPILUMAB
     Indication: Dermatitis
     Dosage: 300 MG/ML EVERY 2 WEEKS SUBCUTANEOUS
     Route: 058
     Dates: start: 20240110
  2. DUPIXENT [Concomitant]
     Active Substance: DUPILUMAB
     Dates: start: 20210110

REACTIONS (2)
  - Joint swelling [None]
  - Injection site swelling [None]

NARRATIVE: CASE EVENT DATE: 20240724
